FAERS Safety Report 9701420 (Version 1)
Quarter: 2013Q4

REPORT INFORMATION
  Report Type: Spontaneous
  Country: US (occurrence: None)
  Receive Date: 20131119
  Receipt Date: 20131119
  Transmission Date: 20140711
  Serious: Yes (Other)
  Sender: FDA-Public Use
  Company Number: 20130633

PATIENT
  Age: 77 Year
  Sex: Female

DRUGS (2)
  1. METHYLENE BLUE [Suspect]
     Indication: SCAN PARATHYROID
     Route: 042
  2. CLOMIPRAMINE [Suspect]
     Indication: PRODUCT USED FOR UNKNOWN INDICATION

REACTIONS (12)
  - Off label use [None]
  - Encephalopathy [None]
  - Confusional state [None]
  - Agitation [None]
  - Mydriasis [None]
  - Muscle rigidity [None]
  - Chills [None]
  - Hyperreflexia [None]
  - Pyrexia [None]
  - Hypertension [None]
  - Tachycardia [None]
  - Clonus [None]
